FAERS Safety Report 8739875 (Version 3)
Quarter: 2013Q2

REPORT INFORMATION
  Report Type: Spontaneous
  Country: DE (occurrence: CA)
  Receive Date: 20120823
  Receipt Date: 20130517
  Transmission Date: 20140414
  Serious: Yes (Hospitalization, Other)
  Sender: FDA-Public Use
  Company Number: CA-FRI-1000038094

PATIENT
  Age: 63 Year
  Sex: Male

DRUGS (1)
  1. ROFLUMILAST [Suspect]
     Indication: CHRONIC OBSTRUCTIVE PULMONARY DISEASE
     Dosage: 500 MCG
     Route: 048
     Dates: start: 201208

REACTIONS (3)
  - Pancreas infection [Unknown]
  - Pneumonia [Recovering/Resolving]
  - Anxiety [Recovering/Resolving]
